FAERS Safety Report 9383394 (Version 4)
Quarter: 2013Q3

REPORT INFORMATION
  Report Type: Spontaneous
  Country: US (occurrence: US)
  Receive Date: 20130704
  Receipt Date: 20130923
  Transmission Date: 20140515
  Serious: No
  Sender: FDA-Public Use
  Company Number: US-009507513-1307USA000099

PATIENT
  Sex: Female
  Weight: 46.26 kg

DRUGS (2)
  1. IMPLANON [Suspect]
     Indication: CONTRACEPTION
     Dosage: UNK
     Route: 023
     Dates: start: 201005
  2. DEPO-PROVERA [Concomitant]

REACTIONS (3)
  - Amenorrhoea [Unknown]
  - Medical device complication [Unknown]
  - Incorrect drug administration duration [Unknown]
